FAERS Safety Report 17004106 (Version 2)
Quarter: 2019Q4

REPORT INFORMATION
  Report Type: Spontaneous
  Country: IT (occurrence: IT)
  Receive Date: 20191107
  Receipt Date: 20191115
  Transmission Date: 20200122
  Serious: Yes (Other)
  Sender: FDA-Public Use
  Company Number: IT-GLAXOSMITHKLINE-IT2019199658

PATIENT
  Age: 67 Year
  Sex: Male

DRUGS (1)
  1. ROPINIROLE. [Suspect]
     Active Substance: ROPINIROLE
     Indication: PRODUCT USED FOR UNKNOWN INDICATION
     Dosage: 4 MG, QD
     Route: 048
     Dates: start: 20190601, end: 20191010

REACTIONS (2)
  - Confusional state [Recovering/Resolving]
  - Impulse-control disorder [Recovering/Resolving]

NARRATIVE: CASE EVENT DATE: 2019
